FAERS Safety Report 7182313-6 (Version None)
Quarter: 2010Q4

REPORT INFORMATION
  Report Type: 
  Country: None (occurrence: None)
  Receive Date: 20101221
  Receipt Date: 20100511
  Transmission Date: 20110411
  Serious: No
  Sender: FDA-Public Use
  Company Number: US-AMGEN-KDL411632

PATIENT

DRUGS (7)
  1. ENBREL [Suspect]
     Indication: PRODUCT USED FOR UNKNOWN INDICATION
     Dosage: 25 MG, QWK
     Route: 058
  2. PANTOPRAZOLE [Concomitant]
     Dosage: 20 MG, UNK
  3. UNSPECIFIED MEDICATION [Concomitant]
     Dosage: .6 ML, UNK
  4. MELOXICAM [Concomitant]
     Dosage: 15 MG, UNK
  5. TYLENOL SINUS MEDICATION [Concomitant]
     Dosage: UNK UNK, UNK
  6. METHOTREXATE [Concomitant]
     Dosage: 1 G, UNK
  7. ACTONEL [Concomitant]
     Dosage: 60 MG, UNK

REACTIONS (5)
  - ABDOMINAL DISTENSION [None]
  - CONSTIPATION [None]
  - HEADACHE [None]
  - HIATUS HERNIA [None]
  - NAUSEA [None]
